FAERS Safety Report 13714261 (Version 2)
Quarter: 2017Q4

REPORT INFORMATION
  Report Type: Report from Study
  Country: None (occurrence: US)
  Receive Date: 20170704
  Receipt Date: 20171025
  Transmission Date: 20180320
  Serious: Yes (Hospitalization)
  Sender: FDA-Public Use
  Company Number: US-ABBVIE-17K-163-2026260-00

PATIENT
  Sex: Male

DRUGS (1)
  1. HUMIRA [Suspect]
     Active Substance: ADALIMUMAB
     Indication: RHEUMATOID ARTHRITIS
     Route: 058
     Dates: start: 201611

REACTIONS (2)
  - Blood viscosity increased [Recovering/Resolving]
  - Heart rate irregular [Recovering/Resolving]

NARRATIVE: CASE EVENT DATE: 2017
